FAERS Safety Report 10290079 (Version 1)
Quarter: 2014Q3

REPORT INFORMATION
  Report Type: Spontaneous
  Country: US (occurrence: None)
  Receive Date: 20140707
  Receipt Date: 20140707
  Transmission Date: 20150326
  Serious: Yes (Life-Threatening, Hospitalization, Other)
  Sender: FDA-Public Use
  Company Number: None

PATIENT
  Age: 44 Year
  Sex: Female
  Weight: 48.99 kg

DRUGS (2)
  1. CEPHALEXIN. [Suspect]
     Active Substance: CEPHALEXIN
     Indication: ENDODONTIC PROCEDURE
     Route: 048
     Dates: start: 20140507, end: 20140515
  2. CEPHALEXIN. [Suspect]
     Active Substance: CEPHALEXIN
     Route: 048
     Dates: start: 20140507, end: 20140515

REACTIONS (7)
  - Panic attack [None]
  - Thinking abnormal [None]
  - Hyperacusis [None]
  - Anxiety [None]
  - Visual impairment [None]
  - Suicidal ideation [None]
  - Fear [None]

NARRATIVE: CASE EVENT DATE: 20140513
